FAERS Safety Report 6526870-9 (Version None)
Quarter: 2010Q1

REPORT INFORMATION
  Report Type: 
  Country: None (occurrence: None)
  Receive Date: 20100105
  Receipt Date: 20091224
  Transmission Date: 20100710
  Serious: Yes (Other)
  Sender: FDA-Public Use
  Company Number: PHHY2009JP59348

PATIENT
  Sex: Male
  Weight: 59 kg

DRUGS (11)
  1. ICL670A ICL+DISTAB [Suspect]
     Indication: IRON OVERLOAD
     Dosage: 1000 MG/DAY
     Route: 048
     Dates: start: 20090212, end: 20090312
  2. ICL670A ICL+DISTAB [Suspect]
     Dosage: 1000 MG/DAY
     Route: 048
     Dates: start: 20090409, end: 20090507
  3. PRIMOBOLAN [Concomitant]
     Indication: MYELODYSPLASTIC SYNDROME
     Dosage: 15 MG, UNK
     Route: 048
     Dates: start: 20090212, end: 20090812
  4. OMEPRAL [Concomitant]
     Indication: PROPHYLAXIS
     Dosage: 20 MG, UNK
     Route: 048
     Dates: start: 20090212, end: 20090812
  5. OMEPRAL [Concomitant]
     Dosage: 20 MG, UNK
     Route: 048
  6. ADONA [Concomitant]
     Indication: PROPHYLAXIS
     Dosage: 90 MG, UNK
     Route: 048
     Dates: start: 20090212, end: 20090812
  7. TRANSAMIN [Concomitant]
     Indication: PROPHYLAXIS
     Dosage: 750 MG, UNK
     Route: 048
     Dates: start: 20090212, end: 20090812
  8. FLOMOX [Concomitant]
     Indication: LIVER DISORDER
     Dosage: 300 MG, UNK
     Route: 048
     Dates: start: 20090226, end: 20090302
  9. GASTER D [Concomitant]
     Indication: PROPHYLAXIS
     Dosage: 40 MG, UNK
     Route: 048
     Dates: start: 20090312, end: 20090408
  10. MYSLEE [Concomitant]
     Indication: LIVER DISORDER
     Dosage: 5 MG, UNK
     Route: 048
     Dates: start: 20090604, end: 20090812
  11. RED BLOOD CELLS [Concomitant]
     Dosage: 2 UNITS EVERY 2 WEEKS
     Dates: start: 20090226, end: 20090827

REACTIONS (6)
  - DIARRHOEA [None]
  - LENTICULAR OPACITIES [None]
  - PROTEIN TOTAL DECREASED [None]
  - RENAL IMPAIRMENT [None]
  - VISUAL ACUITY REDUCED [None]
  - VOMITING [None]
